FAERS Safety Report 25528861 (Version 1)
Quarter: 2025Q3

REPORT INFORMATION
  Report Type: Spontaneous
  Country: GB (occurrence: GB)
  Receive Date: 20250708
  Receipt Date: 20250708
  Transmission Date: 20251021
  Serious: Yes (Other)
  Sender: RANBAXY
  Company Number: GB-SUN PHARMACEUTICAL INDUSTRIES LTD-2025RR-514402

PATIENT
  Age: 50 Year
  Sex: Male
  Weight: 86 kg

DRUGS (5)
  1. CIPROFLOXACIN [Suspect]
     Active Substance: CIPROFLOXACIN
     Indication: Product used for unknown indication
     Dosage: 500 MILLIGRAM, BID
     Route: 065
     Dates: start: 20250408, end: 20250426
  2. NAPROXEN [Concomitant]
     Active Substance: NAPROXEN
     Indication: Product used for unknown indication
     Dosage: 500 MILLIGRAM, BID, ONE TO BE TAKEN TWICE A DAY
     Route: 065
     Dates: start: 20250310, end: 20250422
  3. OMEPRAZOLE [Concomitant]
     Active Substance: OMEPRAZOLE
     Indication: Product used for unknown indication
     Dosage: 20 MILLIGRAM, DAILY, ONE TO BE TAKEN EACH DAY WHILST TAKING NAPROXEN
     Route: 065
     Dates: start: 20250310, end: 20250422
  4. DOXYCYCLINE [Concomitant]
     Active Substance: DOXYCYCLINE
     Indication: Product used for unknown indication
     Dosage: 100 MILLIGRAM, BID, ONE TO BE TAKEN TWICE A DAY
     Route: 065
     Dates: start: 20250407, end: 20250408
  5. CLARITHROMYCIN [Concomitant]
     Active Substance: CLARITHROMYCIN
     Indication: Product used for unknown indication
     Dosage: 500 MILLIGRAM, BID, ONE TO BE TAKEN TWICE A DAY
     Route: 065

REACTIONS (5)
  - Blister [Unknown]
  - Joint swelling [Unknown]
  - Cellulitis [Unknown]
  - Scab [Unknown]
  - Erythema [Unknown]
